FAERS Safety Report 7019974-8 (Version None)
Quarter: 2010Q3

REPORT INFORMATION
  Report Type: 
  Country: None (occurrence: None)
  Receive Date: 20100927
  Receipt Date: 20100907
  Transmission Date: 20110219
  Serious: Yes (Hospitalization)
  Sender: FDA-Public Use
  Company Number: JPI-P-012130

PATIENT
  Age: 70 Year
  Sex: Female

DRUGS (2)
  1. XYREM [Suspect]
     Indication: NARCOLEPSY
     Dosage: 15 GM (7.5 GM, 2 IN 1 D), ORAL; 7.5 GM (3.75 GM, 2 IN 1 D), ORAL
     Route: 048
     Dates: start: 20100501, end: 20100101
  2. XYREM [Suspect]
     Indication: NARCOLEPSY
     Dosage: 15 GM (7.5 GM, 2 IN 1 D), ORAL; 7.5 GM (3.75 GM, 2 IN 1 D), ORAL
     Route: 048
     Dates: start: 20100101

REACTIONS (10)
  - ANXIETY [None]
  - BLOOD SODIUM DECREASED [None]
  - ERYTHEMA [None]
  - HYPERTENSION [None]
  - INAPPROPRIATE SCHEDULE OF DRUG ADMINISTRATION [None]
  - LYMPH GLAND INFECTION [None]
  - PAIN [None]
  - SIALOADENITIS [None]
  - SKIN WARM [None]
  - SWELLING [None]
